FAERS Safety Report 9924447 (Version 2)
Quarter: 2014Q1

REPORT INFORMATION
  Report Type: Spontaneous
  Country: CH (occurrence: CH)
  Receive Date: 20140226
  Receipt Date: 20140324
  Transmission Date: 20141002
  Serious: Yes (Hospitalization)
  Sender: FDA-Public Use
  Company Number: CH-ROCHE-1352483

PATIENT
  Age: 54 Year
  Sex: Male
  Weight: 92 kg

DRUGS (3)
  1. MABTHERA [Suspect]
     Indication: CHRONIC LYMPHOCYTIC LEUKAEMIA
     Route: 042
     Dates: start: 20100705, end: 20110101
  2. BENDAMUSTINE [Concomitant]
     Indication: CHRONIC LYMPHOCYTIC LEUKAEMIA
     Route: 065
  3. ARZERRA [Concomitant]

REACTIONS (3)
  - Drug intolerance [Unknown]
  - Lung disorder [Unknown]
  - Acute respiratory distress syndrome [Recovered/Resolved]
